FAERS Safety Report 20646068 (Version 1)
Quarter: 2022Q1

REPORT INFORMATION
  Report Type: Spontaneous
  Country: ES (occurrence: ES)
  Receive Date: 20220329
  Receipt Date: 20220329
  Transmission Date: 20220423
  Serious: Yes (Other)
  Sender: FDA-Public Use
  Company Number: None

PATIENT
  Age: 45 Year
  Sex: Female

DRUGS (3)
  1. LORMETAZEPAM [Concomitant]
     Active Substance: LORMETAZEPAM
  2. CHLORHEXIDINE [Suspect]
     Active Substance: CHLORHEXIDINE
     Indication: Toothache
     Dosage: ONCE A DAY, AT NIGHT
     Route: 048
     Dates: start: 20220105, end: 20220108
  3. STILNOX 10 mg COMPRIMIDOS RECUBIERTOS CON PELICULA [Concomitant]

REACTIONS (4)
  - Tongue pruritus [Recovering/Resolving]
  - Throat irritation [Recovering/Resolving]
  - Chest discomfort [Recovering/Resolving]
  - Fatigue [Recovering/Resolving]

NARRATIVE: CASE EVENT DATE: 20220108
